FAERS Safety Report 15334419 (Version 4)
Quarter: 2019Q3

REPORT INFORMATION
  Report Type: Spontaneous
  Country: US (occurrence: US)
  Receive Date: 20180830
  Receipt Date: 20190703
  Transmission Date: 20191004
  Serious: Yes (Hospitalization, Other)
  Sender: FDA-Public Use
  Company Number: US-PFIZER INC-2018346581

PATIENT
  Age: 72 Year
  Sex: Female
  Weight: 69.84 kg

DRUGS (2)
  1. IBRANCE [Suspect]
     Active Substance: PALBOCICLIB
     Indication: BREAST CANCER METASTATIC
     Dosage: 125 MG, CYCLIC (DAYS 1-21 Q28 DAYS)
     Route: 048
     Dates: start: 20180802
  2. IBRANCE [Suspect]
     Active Substance: PALBOCICLIB
     Dosage: 100 MG, CYCLIC (DAY 1-21 Q (EVERY) 28 DAYS)
     Route: 048
     Dates: start: 20180802, end: 201906

REACTIONS (6)
  - Neoplasm progression [Unknown]
  - Back pain [Unknown]
  - Cancer pain [Unknown]
  - Full blood count decreased [Not Recovered/Not Resolved]
  - Spinal compression fracture [Unknown]
  - Asthenia [Not Recovered/Not Resolved]

NARRATIVE: CASE EVENT DATE: 2019
